FAERS Safety Report 12486465 (Version 1)
Quarter: 2016Q2

REPORT INFORMATION
  Report Type: Spontaneous
  Country: US (occurrence: US)
  Receive Date: 20160621
  Receipt Date: 20160621
  Transmission Date: 20160815
  Serious: No
  Sender: FDA-Public Use
  Company Number: US-ELI_LILLY_AND_COMPANY-US201606000921

PATIENT
  Sex: Female

DRUGS (3)
  1. TRULICITY [Suspect]
     Active Substance: DULAGLUTIDE
     Indication: DIABETES MELLITUS
     Dosage: 1.5 MG, WEEKLY (1/W)
     Route: 065
     Dates: end: 20160529
  2. CELEBREX [Concomitant]
     Active Substance: CELECOXIB
     Indication: PAIN
  3. GABAPENTIN. [Concomitant]
     Active Substance: GABAPENTIN

REACTIONS (11)
  - Weight increased [Unknown]
  - Back pain [Unknown]
  - Glycosylated haemoglobin increased [Unknown]
  - Agitation [Unknown]
  - Appetite disorder [Unknown]
  - Irritability [Unknown]
  - Lethargy [Unknown]
  - Peripheral swelling [Unknown]
  - Micturition disorder [Unknown]
  - Dysphonia [Unknown]
  - Depressed mood [Unknown]
